FAERS Safety Report 4554429-1 (Version None)
Quarter: 2005Q1

REPORT INFORMATION
  Report Type: 
  Country: None (occurrence: None)
  Receive Date: 20041227
  Receipt Date: 20040929
  Transmission Date: 20050727
  Serious: No
  Sender: FDA-Public Use
  Company Number: 04P-163-0276003-00

PATIENT
  Age: 62 Year
  Sex: Female
  Weight: 67.1324 kg

DRUGS (5)
  1. HUMIRA 40 MG/ 0.8 ML PRE-FILLED SYRINGE (HUMIRA) (ADALIMUMAB) (ADALIMU [Suspect]
     Indication: RHEUMATOID ARTHRITIS
     Dosage: 40 MG, 1 IN 2 WK, INJECTION
     Dates: start: 20040701
  2. CO-DIOVAN [Concomitant]
  3. HYDROCHLOROTHIAZIDE [Concomitant]
  4. IBUPROFEN [Concomitant]
  5. ZOLPIDEM TARTRATE [Concomitant]

REACTIONS (2)
  - CELLULITIS [None]
  - PHLEBITIS [None]
